FAERS Safety Report 7592428-6 (Version None)
Quarter: 2011Q3

REPORT INFORMATION
  Report Type: 
  Country: None (occurrence: None)
  Receive Date: 20110706
  Receipt Date: 20110624
  Transmission Date: 20111222
  Serious: Yes (Hospitalization)
  Sender: FDA-Public Use
  Company Number: GB-NOVOPROD-330633

PATIENT
  Sex: Female
  Weight: 56.689 kg

DRUGS (4)
  1. SERETIDE [Concomitant]
     Route: 055
  2. LANTUS [Concomitant]
     Dosage: 34 IU, QD
  3. NOVORAPID FLEXPEN [Suspect]
     Indication: TYPE 1 DIABETES MELLITUS
     Dosage: 16 IU, QD
     Route: 058
     Dates: start: 19960101
  4. SIMVASTATIN [Concomitant]

REACTIONS (2)
  - CEREBROVASCULAR ACCIDENT [None]
  - MYOCARDIAL INFARCTION [None]
